FAERS Safety Report 12191352 (Version 1)
Quarter: 2016Q1

REPORT INFORMATION
  Report Type: Spontaneous
  Country: CA (occurrence: CA)
  Receive Date: 20160318
  Receipt Date: 20160318
  Transmission Date: 20160526
  Serious: Yes (Hospitalization)
  Sender: FDA-Public Use
  Company Number: CA-ACTELION-A-NJ2016-132936

PATIENT
  Age: 51 Year
  Sex: Female
  Weight: 23.13 kg

DRUGS (9)
  1. SPIRIVA [Concomitant]
     Active Substance: TIOTROPIUM BROMIDE MONOHYDRATE
  2. SALBUTAMOL [Concomitant]
     Active Substance: ALBUTEROL
  3. CARIPUL [Suspect]
     Active Substance: EPOPROSTENOL
     Indication: PULMONARY ARTERIAL HYPERTENSION
     Dosage: UNK
     Route: 042
     Dates: start: 20150509
  4. SPIRONOLACTONE. [Concomitant]
     Active Substance: SPIRONOLACTONE
  5. BECLOMETHASONE DIPROPIONATE [Concomitant]
     Active Substance: BECLOMETHASONE DIPROPIONATE
  6. ADCIRCA [Concomitant]
     Active Substance: TADALAFIL
  7. LASIX [Concomitant]
     Active Substance: FUROSEMIDE
  8. METOLAZONE. [Concomitant]
     Active Substance: METOLAZONE
  9. ADVAIR HFA [Concomitant]
     Active Substance: FLUTICASONE PROPIONATE\SALMETEROL XINAFOATE

REACTIONS (1)
  - Pneumonia [Not Recovered/Not Resolved]
